FAERS Safety Report 8822924 (Version 2)
Quarter: 2012Q4

REPORT INFORMATION
  Report Type: 
  Country: US (occurrence: US)
  Receive Date: 20121003
  Receipt Date: 20121031
  Transmission Date: 20130627
  Serious: Yes (Other)
  Sender: FDA-Public Use
  Company Number: PHEH2012US019061

PATIENT
  Sex: Female
  Weight: 67.59 kg

DRUGS (4)
  1. GILENYA [Suspect]
     Dosage: 1 DF, QD
     Route: 048
     Dates: start: 2011, end: 20121025
  2. ALPRAZOLAM [Concomitant]
     Indication: ANXIETY
     Dosage: 1 DF, PRN (begin with 1/2 tab and increase if needed to 1 tab)
     Route: 048
     Dates: start: 20090407
  3. VALTREX [Concomitant]
     Dosage: 500 mg, QD
     Route: 048
     Dates: start: 20090226
  4. VITAMIN B 12 [Concomitant]
     Dosage: 100 ug, QD
     Route: 048
     Dates: start: 20120627

REACTIONS (4)
  - Breast cancer metastatic [Unknown]
  - Anxiety [Not Recovered/Not Resolved]
  - Diplopia [Not Recovered/Not Resolved]
  - Headache [Not Recovered/Not Resolved]
